FAERS Safety Report 9470175 (Version 1)
Quarter: 2013Q3

REPORT INFORMATION
  Report Type: Spontaneous
  Country: US (occurrence: US)
  Receive Date: 20130822
  Receipt Date: 20130822
  Transmission Date: 20140515
  Serious: Yes (Hospitalization)
  Sender: FDA-Public Use
  Company Number: US-COVIDIEN/TYCO HEALTHCARE/MALLINCKRODT-T201303822

PATIENT
  Age: 16 Year
  Sex: Male

DRUGS (1)
  1. GABLOFEN [Suspect]
     Indication: MUSCLE SPASTICITY
     Dosage: 411.1 MCG/DAY
     Route: 037

REACTIONS (5)
  - Drug withdrawal syndrome [Unknown]
  - Pyrexia [Unknown]
  - Muscle spasticity [Unknown]
  - Hyperhidrosis [Unknown]
  - Heart rate increased [Unknown]
